FAERS Safety Report 13359093 (Version 2)
Quarter: 2017Q2

REPORT INFORMATION
  Report Type: Spontaneous
  Country: US (occurrence: US)
  Receive Date: 20170322
  Receipt Date: 20170622
  Transmission Date: 20170830
  Serious: No
  Sender: FDA-Public Use
  Company Number: US-009507513-1703USA007388

PATIENT
  Age: 29 Year
  Sex: Female
  Weight: 115.19 kg

DRUGS (2)
  1. NEXPLANON [Suspect]
     Active Substance: ETONOGESTREL
     Dosage: 68 MG, 3 YEARS
     Route: 059
     Dates: start: 20170307, end: 20170307
  2. NEXPLANON [Suspect]
     Active Substance: ETONOGESTREL
     Dosage: 68 MG, 3 YEARS
     Route: 059
     Dates: start: 20170307

REACTIONS (3)
  - Complication of device insertion [Recovered/Resolved]
  - Product quality issue [Unknown]
  - No adverse event [Unknown]

NARRATIVE: CASE EVENT DATE: 20170307
